FAERS Safety Report 5036781-6 (Version None)
Quarter: 2006Q2

REPORT INFORMATION
  Report Type: 
  Country: None (occurrence: None)
  Receive Date: 20060616
  Receipt Date: 20060221
  Transmission Date: 20061013
  Serious: No
  Sender: FDA-Public Use
  Company Number: 2006RL000056

PATIENT
  Age: 64 Year
  Sex: Female
  Weight: 58.9676 kg

DRUGS (4)
  1. OMACOR [Suspect]
     Indication: BLOOD CHOLESTEROL INCREASED
     Dosage: 1 GM;QD;PO
     Route: 048
     Dates: start: 20060201
  2. TRICOR [Suspect]
     Indication: BLOOD CHOLESTEROL INCREASED
  3. DYAZIDE [Concomitant]
  4. FOSAMAX [Concomitant]

REACTIONS (2)
  - CONDITION AGGRAVATED [None]
  - MYALGIA [None]
